FAERS Safety Report 7355946-1 (Version None)
Quarter: 2011Q1

REPORT INFORMATION
  Report Type: 
  Country: None (occurrence: None)
  Receive Date: 20110316
  Receipt Date: 20110310
  Transmission Date: 20110831
  Serious: Yes (Other)
  Sender: FDA-Public Use
  Company Number: US-AMGEN-USASP2011013717

PATIENT
  Sex: Female

DRUGS (6)
  1. PROMACTA [Concomitant]
  2. DANAZOL [Concomitant]
     Dosage: UNK
     Dates: start: 19970801
  3. CORTICOSTEROIDS [Concomitant]
     Dosage: UNK
     Dates: start: 19940101
  4. RITUXIMAB [Concomitant]
     Dosage: UNK
     Dates: start: 20040510
  5. NPLATE [Suspect]
     Indication: IDIOPATHIC THROMBOCYTOPENIC PURPURA
     Dosage: 3 A?G/KG, UNK
     Dates: start: 20081222
  6. IMMUNOGLOBULINS [Concomitant]
     Dosage: UNK
     Dates: start: 19960122

REACTIONS (1)
  - PLATELET COUNT DECREASED [None]
